FAERS Safety Report 8764451 (Version 1)
Quarter: 2012Q4

REPORT INFORMATION
  Report Type: 
  Country: US (occurrence: US)
  Receive Date: 20120831
  Receipt Date: 20120831
  Transmission Date: 20130627
  Serious: Yes (Hospitalization, Disabling)
  Sender: FDA-Public Use
  Company Number: US-ELI_LILLY_AND_COMPANY-US201208007684

PATIENT
  Sex: Female

DRUGS (4)
  1. NPH HUMULIN [Suspect]
     Indication: DIABETES MELLITUS
     Dosage: UNK
     Dates: start: 1997, end: 2011
  2. NPH HUMULIN [Suspect]
     Dosage: UNK
     Dates: start: 20120820
  3. LANTUS [Concomitant]
     Dosage: UNK
     Dates: start: 2011, end: 201208
  4. INSULIN [Concomitant]

REACTIONS (4)
  - Cerebrovascular accident [Unknown]
  - Dysarthria [Not Recovered/Not Resolved]
  - Muscular weakness [Not Recovered/Not Resolved]
  - Mobility decreased [Unknown]
